FAERS Safety Report 7353837-3 (Version None)
Quarter: 2011Q1

REPORT INFORMATION
  Report Type: 
  Country: None (occurrence: None)
  Receive Date: 20110315
  Receipt Date: 20101105
  Transmission Date: 20110831
  Serious: No
  Sender: FDA-Public Use
  Company Number: US-BAYER-201023546BCC

PATIENT
  Sex: Female
  Weight: 72.562 kg

DRUGS (4)
  1. MAXZIDE [Concomitant]
  2. ALEVE [Suspect]
     Indication: ARTHRITIS
     Dosage: BOTTLE SIZE 50S
     Route: 048
  3. NEXIUM [Concomitant]
  4. ASPIRIN [Concomitant]

REACTIONS (1)
  - ARTHRITIS [None]
